FAERS Safety Report 8539827 (Version 3)
Quarter: 2014Q1

REPORT INFORMATION
  Report Type: Spontaneous
  Country: CN (occurrence: CN)
  Receive Date: 20120502
  Receipt Date: 20140320
  Transmission Date: 20141002
  Serious: Yes (Hospitalization, Other)
  Sender: FDA-Public Use
  Company Number: CN-JNJFOC-20110502267

PATIENT
  Age: 17 Year
  Sex: Male

DRUGS (2)
  1. RISPERDAL CONSTA [Suspect]
     Indication: SCHIZOPHRENIA
     Route: 030
     Dates: start: 20100712, end: 20110512
  2. RISPERDAL [Suspect]
     Indication: SCHIZOPHRENIA
     Route: 048
     Dates: start: 201007

REACTIONS (4)
  - Otitis media [Not Recovered/Not Resolved]
  - Deafness [Unknown]
  - Myringitis [Recovered/Resolved]
  - Depression [Not Recovered/Not Resolved]
